FAERS Safety Report 13117494 (Version 3)
Quarter: 2017Q1

REPORT INFORMATION
  Report Type: Spontaneous
  Country: JP (occurrence: JP)
  Receive Date: 20170116
  Receipt Date: 20170224
  Transmission Date: 20170428
  Serious: Yes (Death, Hospitalization)
  Sender: FDA-Public Use
  Company Number: JP-OTSUKA-2016_030272AA

PATIENT
  Age: 64 Year
  Sex: Male

DRUGS (5)
  1. HANP [Concomitant]
     Active Substance: CARPERITIDE
     Indication: CARDIAC FAILURE CHRONIC
     Dosage: UNK
     Route: 065
     Dates: end: 20161215
  2. SAMSCA [Suspect]
     Active Substance: TOLVAPTAN
     Indication: CARDIAC FAILURE CHRONIC
     Dosage: 15 MG, QD
     Route: 048
     Dates: start: 20161215, end: 20161217
  3. LASIX [Concomitant]
     Active Substance: FUROSEMIDE
     Indication: PRODUCT USED FOR UNKNOWN INDICATION
     Dosage: 40 MG, UNK
     Route: 042
  4. LASIX [Concomitant]
     Active Substance: FUROSEMIDE
     Indication: PRODUCT USED FOR UNKNOWN INDICATION
     Dosage: 20MG, UNK
     Route: 048
     Dates: start: 20161215
  5. SAMSCA [Suspect]
     Active Substance: TOLVAPTAN
     Dosage: 7.5 MG, QD
     Route: 048
     Dates: start: 20161218

REACTIONS (2)
  - Brain oedema [Fatal]
  - Hypernatraemia [Fatal]

NARRATIVE: CASE EVENT DATE: 20161218
